FAERS Safety Report 24064088 (Version 1)
Quarter: 2024Q3

REPORT INFORMATION
  Report Type: Spontaneous
  Country: JP (occurrence: JP)
  Receive Date: 20240709
  Receipt Date: 20240709
  Transmission Date: 20241017
  Serious: Yes (Death)
  Sender: CHEPLAPHARM
  Company Number: JP-ELI_LILLY_AND_COMPANY-JP202304014386

PATIENT
  Age: 67 Year
  Sex: Male

DRUGS (8)
  1. OLANZAPINE [Suspect]
     Active Substance: OLANZAPINE
     Indication: Schizoaffective disorder
     Dosage: DAILY DOSE: 12.5 MILLIGRAM
  2. DIAZEPAM [Suspect]
     Active Substance: DIAZEPAM
     Indication: Schizoaffective disorder
     Dosage: DAILY DOSE: 3 MILLIGRAM
  3. BIPERIDEN [Suspect]
     Active Substance: BIPERIDEN
     Indication: Schizoaffective disorder
     Dosage: DAILY DOSE: 2 MILLIGRAM
  4. PROMETHAZINE [Suspect]
     Active Substance: PROMETHAZINE HYDROCHLORIDE
     Indication: Schizoaffective disorder
     Dosage: DAILY DOSE: 20 MILLIGRAM
  5. LUBIPROSTONE [Concomitant]
     Active Substance: LUBIPROSTONE
     Indication: Constipation
     Dosage: DAILY DOSE: 48 MICROGRAM
  6. VALSARTAN [Concomitant]
     Active Substance: VALSARTAN
     Indication: Hypertension
     Dosage: DAILY DOSE: 40 MILLIGRAM
  7. ACLATONIUM NAPADISILATE [Concomitant]
     Active Substance: ACLATONIUM NAPADISILATE
     Indication: Constipation
     Dosage: DAILY DOSE: 150 MILLIGRAM
  8. AMLODIPINE [Concomitant]
     Active Substance: AMLODIPINE BESYLATE
     Indication: Hypertension
     Dosage: DAILY DOSE: 2.5 MILLIGRAM

REACTIONS (6)
  - Neuroleptic malignant syndrome [Fatal]
  - Multiple organ dysfunction syndrome [Fatal]
  - Respiratory failure [Fatal]
  - Shock [Fatal]
  - Hepatic failure [Fatal]
  - Renal failure [Fatal]
